FAERS Safety Report 9776864 (Version 2)
Quarter: 2013Q4

REPORT INFORMATION
  Report Type: Spontaneous
  Country: US (occurrence: US)
  Receive Date: 20131221
  Receipt Date: 20131221
  Transmission Date: 20140711
  Serious: Yes (Death, Hospitalization, Other)
  Sender: FDA-Public Use
  Company Number: PHEH2007US016491

PATIENT
  Age: 66 Year
  Sex: Male
  Weight: 97.96 kg

DRUGS (68)
  1. ZOMETA [Suspect]
     Indication: PLASMA CELL MYELOMA
     Dosage: 4 MG, UNK
     Dates: start: 20041129, end: 200610
  2. AREDIA [Suspect]
     Indication: PLASMA CELL MYELOMA
     Dosage: 90 MG, UNK
  3. THALIDOMIDE [Concomitant]
     Indication: PLASMA CELL MYELOMA
     Dosage: 100 MG, QD
     Dates: start: 200606, end: 20060919
  4. THALIDOMIDE [Concomitant]
     Dosage: 200 MG, QD
     Dates: start: 20060920
  5. PREDNISONE [Concomitant]
  6. CHEMOTHERAPEUTICS NOS [Concomitant]
  7. RADIATION THERAPY [Concomitant]
  8. PROCRIT                            /00909301/ [Concomitant]
  9. OXYGEN [Concomitant]
  10. MS CONTIN [Concomitant]
     Indication: PAIN
     Dosage: 100 MG, UNK
  11. OXYCONTIN [Concomitant]
     Indication: PAIN
  12. KADIAN ^KNOLL^ [Concomitant]
     Dates: start: 2004
  13. METHADONE [Concomitant]
  14. LIDOCAINE [Concomitant]
  15. NEUROTON [Concomitant]
     Dosage: 400 MG, UNK
  16. ZANAFLEX [Concomitant]
     Dosage: 4 MG, UNK
  17. NAPROSYN [Concomitant]
  18. ZOLOFT [Concomitant]
     Dosage: 50 MG, UNK
  19. AMBIEN [Concomitant]
     Dosage: 10 MG, UNK
  20. LYRICA [Concomitant]
  21. PHYSICAL THERAPY [Concomitant]
  22. ZITHROMAX ^HEINRICH MACK^ [Concomitant]
  23. KEFLEX                                  /UNK/ [Concomitant]
  24. METFORMIN [Concomitant]
     Dosage: 50 MG, UNK
  25. FLOMAX ^BOEHRINGER INGELHEIM^ [Concomitant]
  26. ATENOLOL [Concomitant]
     Dosage: 100 MG, UNK
  27. NORVASC                                 /DEN/ [Concomitant]
     Dosage: 5 MG, UNK
  28. PLAVIX [Concomitant]
     Dosage: 75 MG, UNK
  29. ASPIRIN ^BAYER^ [Concomitant]
  30. ALLEGRA [Concomitant]
     Dosage: 180 MG, UNK
  31. ALBUTEROL [Concomitant]
  32. NEXIUM [Concomitant]
     Dosage: 40 MG, UNK
  33. CLONAZEPAM [Concomitant]
  34. SERTRALINE [Concomitant]
  35. SYNACORT [Concomitant]
  36. NITROFURAN [Concomitant]
  37. SODIUM BICARBONATE [Concomitant]
  38. SPIRIVA ^PFIZER^ [Concomitant]
  39. ADVAIR [Concomitant]
  40. ARANESP [Concomitant]
  41. VELCADE [Concomitant]
     Dates: start: 20060501
  42. CHANTIX [Concomitant]
  43. NITROGLYCERIN ^A.L.^ [Concomitant]
  44. GENTEAL                            /03186201/ [Concomitant]
  45. MULTIVITAMIN AND MINERAL SUPP [Concomitant]
  46. NEURONTIN [Concomitant]
     Dosage: 600 MG, BID
  47. FUROSEMIDE [Concomitant]
     Dosage: 20 MG, QD
  48. FENTANYL [Concomitant]
  49. ESTER-C [Concomitant]
  50. MEGESTROL [Concomitant]
  51. LEVOSALBUTAMOL [Concomitant]
     Dosage: 45 UG, UNK
     Route: 048
     Dates: start: 20061102
  52. MOMETASONE [Concomitant]
     Dosage: 220 UG, UNK
     Route: 048
     Dates: start: 20061102
  53. IPRATROPIUM [Concomitant]
     Route: 048
     Dates: start: 20061102, end: 20061121
  54. IPRATROPIUM [Concomitant]
     Route: 048
     Dates: start: 20070619
  55. FLUOXETINE [Concomitant]
     Dosage: 2 DF,
     Route: 048
     Dates: start: 20061102, end: 20071121
  56. FLUVAX [Concomitant]
     Dates: start: 200610
  57. PNEUMOVAX [Concomitant]
     Dates: start: 200610
  58. VALERIAN [Concomitant]
  59. SENOKOT                                 /UNK/ [Concomitant]
  60. BABY ASPIRIN [Concomitant]
  61. IBUPROFEN [Concomitant]
  62. IRON [Concomitant]
  63. MELPHALAN [Concomitant]
  64. HUMIBID [Concomitant]
  65. STOOL SOFTENER [Concomitant]
  66. COMPAZINE [Concomitant]
     Dosage: 10 MG, PRN
  67. ACYCLOVIR [Concomitant]
  68. BACTRIM [Concomitant]

REACTIONS (123)
  - Death [Fatal]
  - Hallucination [Recovered/Resolved]
  - Confusional state [Recovered/Resolved]
  - Chronic obstructive pulmonary disease [Unknown]
  - Dyspnoea [Not Recovered/Not Resolved]
  - Sleep disorder due to a general medical condition [Not Recovered/Not Resolved]
  - Osteomyelitis [Unknown]
  - Localised infection [Unknown]
  - Squamous cell carcinoma of skin [Unknown]
  - Bowen^s disease [Unknown]
  - Paraplegia [Unknown]
  - Back pain [Unknown]
  - Osteonecrosis of jaw [Unknown]
  - Exposed bone in jaw [Unknown]
  - Dysphagia [Unknown]
  - Anxiety [Unknown]
  - Pain [Unknown]
  - Decreased interest [Unknown]
  - General physical health deterioration [Unknown]
  - Plasma cell myeloma [Not Recovered/Not Resolved]
  - Plasma cell myeloma recurrent [Unknown]
  - Blood immunoglobulin G increased [Unknown]
  - Myoclonus [Unknown]
  - Glaucoma [Unknown]
  - Vision blurred [Unknown]
  - Aortic aneurysm [Unknown]
  - Renal failure chronic [Unknown]
  - Blood calcium decreased [Unknown]
  - Angina unstable [Unknown]
  - Haematuria [Unknown]
  - Bundle branch block right [Unknown]
  - Bundle branch block left [Unknown]
  - Feeling abnormal [Unknown]
  - Eye naevus [Unknown]
  - Hypermetropia [Unknown]
  - Astigmatism [Unknown]
  - Blepharitis [Unknown]
  - Abnormal sensation in eye [Unknown]
  - Optic nerve cupping [Unknown]
  - Vesical fistula [Unknown]
  - Pancytopenia [Unknown]
  - Plasmacytosis [Unknown]
  - Circulatory collapse [Unknown]
  - Musculoskeletal pain [Unknown]
  - Peroneal nerve palsy [Unknown]
  - Hypotension [Unknown]
  - Asthenia [Unknown]
  - Anaemia of chronic disease [Unknown]
  - Protein urine present [Unknown]
  - Impaired healing [Unknown]
  - Foot deformity [Unknown]
  - Scar [Unknown]
  - Bladder cancer [Unknown]
  - Sepsis [Recovered/Resolved]
  - Myocardial infarction [Unknown]
  - Cerebrovascular accident [Unknown]
  - Decubitus ulcer [Unknown]
  - Dehydration [Unknown]
  - Hypercalcaemia of malignancy [Unknown]
  - Convulsion [Unknown]
  - Viral infection [Unknown]
  - Diverticulum [Unknown]
  - Respiratory distress [Unknown]
  - Hypokalaemia [Unknown]
  - Thrombocytopenia [Unknown]
  - Drug abuse [Unknown]
  - Hepatic steatosis [Unknown]
  - Lethargy [Unknown]
  - Radiculitis lumbosacral [Unknown]
  - Ligament sprain [Unknown]
  - Haematoma [Unknown]
  - Asteatosis [Unknown]
  - Dermal cyst [Unknown]
  - Acquired oesophageal web [Unknown]
  - Hypoaesthesia [Unknown]
  - Diabetes mellitus [Unknown]
  - Left ventricular dysfunction [Unknown]
  - Lumbar spinal stenosis [Unknown]
  - Intervertebral disc degeneration [Unknown]
  - Ejection fraction abnormal [Unknown]
  - Visual acuity reduced [Unknown]
  - Weight decreased [Unknown]
  - Myalgia [Unknown]
  - Arthralgia [Unknown]
  - Dyspepsia [Unknown]
  - Tooth disorder [Unknown]
  - Rib fracture [Unknown]
  - Cellulitis [Unknown]
  - Osteosclerosis [Unknown]
  - Osteoarthritis [Unknown]
  - Arteriosclerosis [Unknown]
  - Gallbladder polyp [Unknown]
  - Neuralgia [Unknown]
  - Weight increased [Unknown]
  - Pneumonia [Unknown]
  - Hyperglycaemia [Unknown]
  - Cough [Unknown]
  - Lung infiltration [Unknown]
  - Facial bones fracture [Unknown]
  - Pulmonary fibrosis [Unknown]
  - Pneumaturia [Unknown]
  - Faecaluria [Unknown]
  - Bladder trabeculation [Unknown]
  - Hypoxia [Unknown]
  - Cardiomegaly [Unknown]
  - Oedema peripheral [Unknown]
  - Joint swelling [Unknown]
  - Blister [Unknown]
  - Atelectasis [Unknown]
  - Oral candidiasis [Unknown]
  - Spinal osteoarthritis [Unknown]
  - Foot fracture [Unknown]
  - Pain in extremity [Recovered/Resolved]
  - Respiratory failure [Unknown]
  - Rash [Unknown]
  - Wheezing [Unknown]
  - Dermatitis [Unknown]
  - Dysuria [Unknown]
  - Interstitial lung disease [Unknown]
  - Renal cyst [Unknown]
  - Bronchitis [Recovering/Resolving]
  - Fatigue [Unknown]
  - Vomiting [Unknown]
